FAERS Safety Report 5824912-7 (Version None)
Quarter: 2008Q3

REPORT INFORMATION
  Report Type: 
  Country: None (occurrence: None)
  Receive Date: 20080728
  Receipt Date: 20080716
  Transmission Date: 20090109
  Serious: Yes (Other)
  Sender: FDA-Public Use
  Company Number: US-PFIZER INC-2008019522

PATIENT
  Sex: Male
  Weight: 97.5 kg

DRUGS (7)
  1. CHANTIX [Suspect]
     Indication: SMOKING CESSATION THERAPY
     Route: 048
  2. CHANTIX [Suspect]
     Indication: TOBACCO ABUSE
  3. LISINOPRIL [Concomitant]
  4. GLIPIZIDE [Concomitant]
  5. LOVASTATIN [Concomitant]
  6. ACTOS [Concomitant]
  7. VICODIN [Concomitant]

REACTIONS (1)
  - LOSS OF CONSCIOUSNESS [None]
